FAERS Safety Report 7491437-5 (Version None)
Quarter: 2011Q2

REPORT INFORMATION
  Report Type: 
  Country: None (occurrence: None)
  Receive Date: 20110519
  Receipt Date: 20110510
  Transmission Date: 20111010
  Serious: Yes (Other)
  Sender: FDA-Public Use
  Company Number: PHHY2011DE39796

PATIENT

DRUGS (1)
  1. EXELON [Suspect]
     Dosage: 4.6 MG/ 24 HRS
     Route: 062

REACTIONS (1)
  - EXTRAPYRAMIDAL DISORDER [None]
